FAERS Safety Report 24724900 (Version 1)
Quarter: 2024Q4

REPORT INFORMATION
  Report Type: Spontaneous
  Country: BD (occurrence: BD)
  Receive Date: 20241212
  Receipt Date: 20241212
  Transmission Date: 20250115
  Serious: Yes (Hospitalization, Other)
  Sender: AZURITY PHARMACEUTICALS
  Company Number: BD-AZURITY PHARMACEUTICALS, INC.-AZR202411-001219

PATIENT
  Age: 35 Year
  Sex: Female

DRUGS (1)
  1. METHOTREXATE [Suspect]
     Active Substance: METHOTREXATE
     Indication: Product used for unknown indication
     Dosage: 10 MILLIGRAM, QD FOR 12 CONSECUTIVE DAYS
     Route: 065

REACTIONS (9)
  - Blood potassium increased [Recovering/Resolving]
  - Toxicity to various agents [Recovering/Resolving]
  - Pancytopenia [Recovering/Resolving]
  - Hepatotoxicity [Recovering/Resolving]
  - Nephropathy toxic [Recovering/Resolving]
  - Mucocutaneous toxicity [Recovering/Resolving]
  - Gastric ulcer haemorrhage [Recovering/Resolving]
  - Accidental overdose [Unknown]
  - Wrong product administered [Unknown]
